FAERS Safety Report 6259353-4 (Version None)
Quarter: 2009Q3

REPORT INFORMATION
  Report Type: 
  Country: None (occurrence: None)
  Receive Date: 20090706
  Receipt Date: 20090623
  Transmission Date: 20100115
  Serious: Yes (Other)
  Sender: FDA-Public Use
  Company Number: 2009AP002543

PATIENT
  Age: 85 Year
  Sex: Male

DRUGS (7)
  1. SOTALOL HCL [Suspect]
     Indication: HEART RATE IRREGULAR
     Dosage: 120 MG;QD;PO
     Route: 048
  2. METOPROLOL SUCCINATE [Concomitant]
  3. ADENOSINE [Concomitant]
  4. OMEPRAZOLE [Concomitant]
  5. ATORVASTATIN CALCIUM [Concomitant]
  6. TRIAMTERENE [Concomitant]
  7. SOTALOL [Concomitant]

REACTIONS (5)
  - AGEUSIA [None]
  - CONDITION AGGRAVATED [None]
  - DECREASED APPETITE [None]
  - DYSGEUSIA [None]
  - INCORRECT DOSE ADMINISTERED [None]
